FAERS Safety Report 5943214-1 (Version None)
Quarter: 2008Q4

REPORT INFORMATION
  Report Type: 
  Country: None (occurrence: None)
  Receive Date: 20081106
  Receipt Date: 20081031
  Transmission Date: 20090506
  Serious: Yes (Hospitalization)
  Sender: FDA-Public Use
  Company Number: B0544502A

PATIENT
  Age: 44 Year
  Sex: Male

DRUGS (2)
  1. AMOXICILLIN TRIHYDRATE [Suspect]
     Indication: TOOTH INFECTION
     Route: 048
     Dates: start: 20060710, end: 20060710
  2. ADVIL [Concomitant]
     Indication: DRUG USE FOR UNKNOWN INDICATION
     Route: 048
     Dates: start: 20060705, end: 20060709

REACTIONS (9)
  - ANAPHYLACTIC SHOCK [None]
  - BLOOD PRESSURE DECREASED [None]
  - CYANOSIS [None]
  - ERYTHEMA [None]
  - FEELING HOT [None]
  - LOSS OF CONSCIOUSNESS [None]
  - MALAISE [None]
  - PERIPHERAL COLDNESS [None]
  - PRURITUS [None]
